FAERS Safety Report 24798921 (Version 4)
Quarter: 2025Q1

REPORT INFORMATION
  Report Type: Report from Study
  Country: CO (occurrence: CO)
  Receive Date: 20250102
  Receipt Date: 20250123
  Transmission Date: 20250409
  Serious: Yes (Other)
  Sender: REGENERON
  Company Number: CO-BAYER-2024A184247

PATIENT
  Age: 68 Year
  Sex: Female

DRUGS (9)
  1. EYLEA [Suspect]
     Active Substance: AFLIBERCEPT
     Indication: Neovascular age-related macular degeneration
     Dates: start: 20231212
  2. EYLEA [Suspect]
     Active Substance: AFLIBERCEPT
     Dates: start: 20240423
  3. EYLEA [Suspect]
     Active Substance: AFLIBERCEPT
     Dates: start: 20240528
  4. EYLEA [Suspect]
     Active Substance: AFLIBERCEPT
     Dates: start: 20240618, end: 20240618
  5. EYLEA [Suspect]
     Active Substance: AFLIBERCEPT
     Dates: start: 20240911, end: 20240911
  6. EYLEA [Suspect]
     Active Substance: AFLIBERCEPT
     Dates: start: 20241106, end: 20241106
  7. EYLEA [Suspect]
     Active Substance: AFLIBERCEPT
     Dates: start: 20240913, end: 20240913
  8. EYLEA [Suspect]
     Active Substance: AFLIBERCEPT
     Dates: start: 20241010, end: 20241010
  9. EYLEA [Suspect]
     Active Substance: AFLIBERCEPT
     Dates: start: 20241224, end: 20241224

REACTIONS (8)
  - Blindness transient [Recovering/Resolving]
  - Cataract [Unknown]
  - Ocular discomfort [Not Recovered/Not Resolved]
  - Visual impairment [Not Recovered/Not Resolved]
  - Eye pain [Not Recovered/Not Resolved]
  - Vision blurred [Unknown]
  - Lacrimation increased [Not Recovered/Not Resolved]
  - Product use issue [Unknown]

NARRATIVE: CASE EVENT DATE: 20241224
